FAERS Safety Report 17411051 (Version 2)
Quarter: 2020Q1

REPORT INFORMATION
  Report Type: Spontaneous
  Country: US (occurrence: US)
  Receive Date: 20200212
  Receipt Date: 20200228
  Transmission Date: 20200409
  Serious: No
  Sender: FDA-Public Use
  Company Number: US-ACTELION-A-NJ2020-201501

PATIENT
  Sex: Female

DRUGS (15)
  1. NEXIUM [Concomitant]
     Active Substance: ESOMEPRAZOLE MAGNESIUM
  2. UPTRAVI [Suspect]
     Active Substance: SELEXIPAG
     Indication: COR PULMONALE
     Route: 048
  3. VITAMIN B6 [Concomitant]
     Active Substance: PYRIDOXINE HYDROCHLORIDE
  4. AMOXICILLIN. [Concomitant]
     Active Substance: AMOXICILLIN
  5. SIMVASTATIN. [Concomitant]
     Active Substance: SIMVASTATIN
  6. FUROSEMIDE. [Concomitant]
     Active Substance: FUROSEMIDE
  7. WARFARIN SODIUM. [Concomitant]
     Active Substance: WARFARIN SODIUM
  8. CITALOPRAM HYDROBROMIDE. [Concomitant]
     Active Substance: CITALOPRAM HYDROBROMIDE
  9. POTASSIUM CHLORIDE. [Concomitant]
     Active Substance: POTASSIUM CHLORIDE
  10. CALCIUM [Concomitant]
     Active Substance: CALCIUM
  11. PANTOPRAZOLE SODIUM. [Concomitant]
     Active Substance: PANTOPRAZOLE SODIUM
  12. TRAMADOL HYDROCHLORIDE. [Concomitant]
     Active Substance: TRAMADOL HYDROCHLORIDE
  13. FLUTICASONE PROPIONATE. [Concomitant]
     Active Substance: FLUTICASONE PROPIONATE
  14. OPSUMIT [Suspect]
     Active Substance: MACITENTAN
     Indication: COR PULMONALE
     Dosage: UNK
     Route: 048
  15. ADVAIR HFA [Concomitant]
     Active Substance: FLUTICASONE PROPIONATE\SALMETEROL XINAFOATE
     Dosage: 100/50

REACTIONS (2)
  - Dyspnoea [Not Recovered/Not Resolved]
  - Product dose omission [Recovered/Resolved]
